FAERS Safety Report 14921937 (Version 3)
Quarter: 2018Q3

REPORT INFORMATION
  Report Type: Spontaneous
  Country: US (occurrence: US)
  Receive Date: 20180522
  Receipt Date: 20180712
  Transmission Date: 20181010
  Serious: Yes (Other)
  Sender: FDA-Public Use
  Company Number: US-BIOGEN-2018BI00580023

PATIENT
  Age: 50 Year
  Sex: Male

DRUGS (4)
  1. TYSABRI [Suspect]
     Active Substance: NATALIZUMAB
     Route: 065
     Dates: end: 20170620
  2. TYSABRI [Suspect]
     Active Substance: NATALIZUMAB
     Indication: MULTIPLE SCLEROSIS
     Route: 065
     Dates: start: 20161114
  3. TYSABRI [Suspect]
     Active Substance: NATALIZUMAB
     Dosage: INFUSED OVER ONE HOUR
     Route: 042
     Dates: start: 20161115
  4. TYSABRI [Suspect]
     Active Substance: NATALIZUMAB
     Dosage: INFUSED OVER ONE HOUR
     Route: 042
     Dates: end: 201707

REACTIONS (8)
  - Amnesia [Not Recovered/Not Resolved]
  - Gait disturbance [Not Recovered/Not Resolved]
  - Drug dose omission [Recovered/Resolved]
  - Fatigue [Recovered/Resolved]
  - Headache [Unknown]
  - Confusional state [Not Recovered/Not Resolved]
  - Hemiplegia [Not Recovered/Not Resolved]
  - Laceration [Recovered/Resolved]

NARRATIVE: CASE EVENT DATE: 201611
